FAERS Safety Report 9258450 (Version 1)
Quarter: 2013Q1

REPORT INFORMATION
  Report Type: Spontaneous
  Country: US (occurrence: None)
  Receive Date: 20121212
  Receipt Date: 20121212
  Transmission Date: 20140127
  Serious: No
  Sender: FDA-Public Use
  Company Number: 1209USA010019

PATIENT
  Age: 61 Year
  Sex: Male

DRUGS (4)
  1. REBETOL (RIBAVIRIN) [Suspect]
     Indication: HEPATITIS C
     Dates: start: 20120817
  2. PEG-INTRON [Suspect]
     Indication: HEPATITIS C
     Dates: start: 20120907
  3. PEGASYS (PEGINTERFERON ALFA-2A) [Concomitant]
  4. VICTRELIS (BOCEPREVIR) [Suspect]
     Dates: start: 20120914

REACTIONS (3)
  - Rash [None]
  - Insomnia [None]
  - Dysgeusia [None]
